FAERS Safety Report 5027703-2 (Version None)
Quarter: 2006Q2

REPORT INFORMATION
  Report Type: 
  Country: None (occurrence: None)
  Receive Date: 20060428
  Receipt Date: 20060208
  Transmission Date: 20061013
  Serious: No
  Sender: FDA-Public Use
  Company Number: COT_0403_2006

PATIENT
  Age: 45 Year
  Sex: Female
  Weight: 69 kg

DRUGS (18)
  1. VENTAVIS [Suspect]
     Indication: PULMONARY HYPERTENSION
     Dosage: 5 MCG 4 - 5X/DAY IH
     Dates: start: 20060117, end: 20060203
  2. BONIVA [Concomitant]
  3. SILDENAFIL [Concomitant]
  4. DIGITEK [Concomitant]
  5. K-DUR 10 [Concomitant]
  6. BUMEX [Concomitant]
  7. NOVOLOG [Concomitant]
  8. LANTUS [Concomitant]
  9. COUMADIN [Concomitant]
  10. TRICOR [Concomitant]
  11. ZETIA [Concomitant]
  12. VITAMIN D [Concomitant]
  13. KLONOPIN [Concomitant]
  14. METHADONE HCL [Concomitant]
  15. QUININE SULFATE [Concomitant]
  16. COLACE [Concomitant]
  17. PROTONIX [Concomitant]
  18. VALIUM [Concomitant]

REACTIONS (2)
  - HYPERSENSITIVITY [None]
  - STOMATITIS [None]
